FAERS Safety Report 15526859 (Version 1)
Quarter: 2018Q4

REPORT INFORMATION
  Report Type: Spontaneous
  Country: FR (occurrence: FR)
  Receive Date: 20181018
  Receipt Date: 20181018
  Transmission Date: 20190205
  Serious: Yes (Hospitalization, Other)
  Sender: FDA-Public Use
  Company Number: FR-JNJFOC-20181025763

PATIENT
  Sex: Female

DRUGS (2)
  1. TRAMADOL HYDROCHLORIDE. [Suspect]
     Active Substance: TRAMADOL HYDROCHLORIDE
     Indication: PRODUCT USED FOR UNKNOWN INDICATION
     Route: 065
  2. PAROXETINE. [Interacting]
     Active Substance: PAROXETINE
     Indication: DEPRESSION
     Route: 048
     Dates: start: 2006

REACTIONS (8)
  - Angioedema [Unknown]
  - Blister [Unknown]
  - Hot flush [Unknown]
  - Drug interaction [Unknown]
  - Rash macular [Unknown]
  - Paralysis [Unknown]
  - Labelled drug-drug interaction medication error [Unknown]
  - Medication error [Unknown]

NARRATIVE: CASE EVENT DATE: 20180930
